FAERS Safety Report 16499270 (Version 2)
Quarter: 2022Q1

REPORT INFORMATION
  Report Type: Spontaneous
  Country: CH (occurrence: CH)
  Receive Date: 20190701
  Receipt Date: 20220202
  Transmission Date: 20220423
  Serious: Yes (Life-Threatening, Hospitalization, Other)
  Sender: FDA-Public Use
  Company Number: CH-SM-2019-14296

PATIENT
  Age: 19 Year
  Sex: Male

DRUGS (15)
  1. IBUPROFEN [Suspect]
     Active Substance: IBUPROFEN
     Route: 048
     Dates: start: 20190211, end: 20190211
  2. IBUPROFEN [Suspect]
     Active Substance: IBUPROFEN
     Route: 048
  3. AMLODIPINE BESYLATE [Suspect]
     Active Substance: AMLODIPINE BESYLATE
     Route: 048
     Dates: start: 20190211, end: 20190211
  4. AMLODIPINE BESYLATE [Suspect]
     Active Substance: AMLODIPINE BESYLATE
     Route: 048
  5. DAFALGAN [Suspect]
     Active Substance: ACETAMINOPHEN
     Route: 048
     Dates: start: 20190211, end: 20190211
  6. DAFALGAN [Suspect]
     Active Substance: ACETAMINOPHEN
     Route: 048
  7. CLONIDINE [Suspect]
     Active Substance: CLONIDINE
     Route: 065
  8. METAMIZOLE [Suspect]
     Active Substance: METAMIZOLE
     Route: 048
     Dates: start: 20190211, end: 20190211
  9. PANTOZOL [Suspect]
     Active Substance: PANTOPRAZOLE SODIUM
     Route: 048
     Dates: start: 20190211, end: 20190211
  10. PANTOZOL [Suspect]
     Active Substance: PANTOPRAZOLE SODIUM
     Route: 048
  11. ZOLPIDEM TARTRATE [Suspect]
     Active Substance: ZOLPIDEM TARTRATE
     Route: 048
     Dates: start: 20190211, end: 20190211
  12. ZOLPIDEM TARTRATE [Suspect]
     Active Substance: ZOLPIDEM TARTRATE
     Route: 048
  13. LORAZEPAM [Suspect]
     Active Substance: LORAZEPAM
     Route: 048
     Dates: start: 20190211, end: 20190211
  14. LORAZEPAM [Suspect]
     Active Substance: LORAZEPAM
     Route: 048
  15. NEBIDO [Concomitant]
     Active Substance: TESTOSTERONE UNDECANOATE
     Dosage: NUMBER OF UNITS IN THE INTEVAL: 2-3
     Route: 030

REACTIONS (5)
  - Toxicity to various agents [Recovered/Resolved]
  - Coma [Recovered/Resolved]
  - Disturbance in attention [Recovered/Resolved]
  - Intentional overdose [Recovered/Resolved]
  - Somnolence [Recovered/Resolved]

NARRATIVE: CASE EVENT DATE: 20190211
